FAERS Safety Report 22400421 (Version 1)
Quarter: 2023Q2

REPORT INFORMATION
  Report Type: Spontaneous
  Country: US (occurrence: US)
  Receive Date: 20230602
  Receipt Date: 20230602
  Transmission Date: 20230722
  Serious: Yes (Death, Life-Threatening)
  Sender: FDA-Public Use
  Company Number: US-TEVA-2023-US-2893204

PATIENT
  Age: 61 Year
  Sex: Female

DRUGS (4)
  1. ATENOLOL [Suspect]
     Active Substance: ATENOLOL
     Indication: Suicide attempt
     Dosage: 2250 MILLIGRAM
     Route: 048
  2. HYDROCHLOROTHIAZIDE [Suspect]
     Active Substance: HYDROCHLOROTHIAZIDE
     Indication: Suicide attempt
     Dosage: 1025 MILLIGRAM
     Route: 048
  3. SIMVASTATIN [Suspect]
     Active Substance: SIMVASTATIN
     Indication: Suicide attempt
     Dosage: 1600 MILLIGRAM
     Route: 048
  4. AMLODIPINE [Suspect]
     Active Substance: AMLODIPINE BESYLATE
     Indication: Suicide attempt
     Dosage: 900 MILLIGRAM
     Route: 048

REACTIONS (6)
  - Thrombosis [Fatal]
  - Suicide attempt [Unknown]
  - Bradycardia [Not Recovered/Not Resolved]
  - Respiratory failure [Not Recovered/Not Resolved]
  - Hypotension [Not Recovered/Not Resolved]
  - Intentional overdose [Unknown]
